FAERS Safety Report 9034478 (Version 1)
Quarter: 2013Q1

REPORT INFORMATION
  Report Type: Spontaneous
  Country: DE (occurrence: None)
  Receive Date: 20130111
  Receipt Date: 20130111
  Transmission Date: 20140127
  Serious: Yes (Other)
  Sender: FDA-Public Use
  Company Number: DSA_61694_2013

PATIENT
  Age: 41 Year
  Sex: Male

DRUGS (1)
  1. ELONTRIL (ELONTRIL-BUPROPION HYDROCHLORIDE) (NOT SPECIFIED) [Suspect]
     Indication: DEPRESSION
     Route: 048
     Dates: start: 20120628

REACTIONS (4)
  - Upper respiratory tract infection bacterial [None]
  - Disease recurrence [None]
  - Condition aggravated [None]
  - Bronchitis [None]
